FAERS Safety Report 8313647-7 (Version None)
Quarter: 2012Q2

REPORT INFORMATION
  Report Type: 
  Country: None (occurrence: None)
  Receive Date: 20120426
  Receipt Date: 20120412
  Transmission Date: 20120825
  Serious: Yes (Hospitalization)
  Sender: FDA-Public Use
  Company Number: US-MYLANLABS-2012S1007890

PATIENT
  Age: 52 Year
  Sex: Male

DRUGS (9)
  1. CARVEDILOL [Concomitant]
     Route: 065
  2. ISOSORBIDE MONONITRATE [Concomitant]
     Route: 065
  3. WARFARIN SODIUM [Concomitant]
     Route: 065
  4. SPIRONOLACTONE [Concomitant]
     Route: 065
  5. DIGOXIN [Suspect]
     Route: 065
  6. HYDRALAZINE HCL [Concomitant]
     Route: 065
  7. FUROSEMIDE [Concomitant]
     Route: 065
  8. LISINOPRIL [Concomitant]
     Route: 065
  9. AMIODARONE HCL [Concomitant]
     Route: 065

REACTIONS (9)
  - ABDOMINAL PAIN [None]
  - RENAL FAILURE ACUTE [None]
  - HALLUCINATION, AUDITORY [None]
  - NAUSEA [None]
  - HYPERKALAEMIA [None]
  - TOXICITY TO VARIOUS AGENTS [None]
  - HYPOTENSION [None]
  - BRADYCARDIA [None]
  - VOMITING [None]
